FAERS Safety Report 25075264 (Version 1)
Quarter: 2025Q1

REPORT INFORMATION
  Report Type: Other
  Country: US (occurrence: US)
  Receive Date: 20250313
  Receipt Date: 20250313
  Transmission Date: 20250408
  Serious: Yes (Life-Threatening)
  Sender: MISSION PHARMACAL COMPANY
  Company Number: US-Mission Pharmacal Company-2172842

PATIENT
  Age: 78 Year
  Sex: Female

DRUGS (1)
  1. THIOLA EC [Suspect]
     Active Substance: TIOPRONIN
     Indication: Cystinuria
     Dates: start: 20160906

REACTIONS (1)
  - Chronic kidney disease [Unknown]
